FAERS Safety Report 10161308 (Version 1)
Quarter: 2014Q2

REPORT INFORMATION
  Report Type: Spontaneous
  Country: US (occurrence: US)
  Receive Date: 20140508
  Receipt Date: 20140508
  Transmission Date: 20141212
  Serious: No
  Sender: FDA-Public Use
  Company Number: US-009507513-1405USA004065

PATIENT
  Age: 25 Year
  Sex: Female

DRUGS (1)
  1. NEXPLANON [Suspect]
     Indication: CONTRACEPTION
     Dosage: 68 MG/ONE ROD,INSERTED EVERY THREE YEARS
     Route: 059
     Dates: start: 20140501, end: 20140505

REACTIONS (2)
  - Implant site pruritus [Unknown]
  - Hypersensitivity [Unknown]
